FAERS Safety Report 4335833-3 (Version None)
Quarter: 2004Q2

REPORT INFORMATION
  Report Type: 
  Country: None (occurrence: None)
  Receive Date: 20040409
  Receipt Date: 20040405
  Transmission Date: 20050107
  Serious: Yes (Hospitalization)
  Sender: FDA-Public Use
  Company Number: PHBS2004FR04509

PATIENT
  Age: 58 Year
  Sex: Female

DRUGS (6)
  1. CARTEOLOL (NVO) [Suspect]
     Indication: CATARACT OPERATION
     Dates: start: 20040122, end: 20040128
  2. PHENOBARBITAL TAB [Concomitant]
     Indication: EPILEPSY
  3. DEPAKENE [Concomitant]
     Indication: EPILEPSY
     Dates: end: 20040128
  4. INDOCOLLYRE [Suspect]
     Dates: start: 20040122, end: 20040128
  5. DIAMOX [Suspect]
     Route: 048
     Dates: start: 20040122, end: 20040124
  6. PROFENID [Suspect]
     Dates: start: 20040122, end: 20040122

REACTIONS (15)
  - BLOOD ALKALINE PHOSPHATASE INCREASED [None]
  - DERMATITIS EXFOLIATIVE [None]
  - EOSINOPHILIA [None]
  - EPSTEIN-BARR VIRUS ANTIBODY POSITIVE [None]
  - FACE OEDEMA [None]
  - GAMMA-GLUTAMYLTRANSFERASE INCREASED [None]
  - HEPATIC ENZYME INCREASED [None]
  - LIVER DISORDER [None]
  - MALAISE [None]
  - OEDEMA PERIPHERAL [None]
  - PETECHIAE [None]
  - PRURITUS [None]
  - PYREXIA [None]
  - RASH MACULAR [None]
  - SKIN DESQUAMATION [None]
